FAERS Safety Report 4691619-1 (Version None)
Quarter: 2005Q2

REPORT INFORMATION
  Report Type: 
  Country: None (occurrence: None)
  Receive Date: 20050608
  Receipt Date: 20040504
  Transmission Date: 20051028
  Serious: Yes (Other)
  Sender: FDA-Public Use
  Company Number: 344520

PATIENT
  Sex: Female
  Weight: 3.2 kg

DRUGS (1)
  1. ISOTRETINOIN [Suspect]
     Indication: ACNE
     Dosage: 60 MG DAILY ORAL
     Route: 048
     Dates: start: 20030115, end: 20030601

REACTIONS (2)
  - LIVE BIRTH [None]
  - NORMAL NEWBORN [None]
